FAERS Safety Report 10315244 (Version 2)
Quarter: 2015Q1

REPORT INFORMATION
  Report Type: Other
  Country: US (occurrence: US)
  Receive Date: 20140719
  Receipt Date: 20150114
  Transmission Date: 20150720
  Serious: Yes (Hospitalization, Other)
  Sender: FDA-Public Use
  Company Number: US-GSKPPD-2014GSK014462

PATIENT
  Age: 66 Year
  Sex: Male

DRUGS (5)
  1. PLAVIX [Concomitant]
     Active Substance: CLOPIDOGREL BISULFATE
     Dosage: TREATMENT MEDICATION
     Dates: start: 200604
  2. ATENOLOL. [Concomitant]
     Active Substance: ATENOLOL
     Dosage: TREATMENT MEDICATION
     Dates: start: 200604
  3. ZOCOR [Concomitant]
     Active Substance: SIMVASTATIN
     Dosage: TREATMENT MEDICATION
     Dates: start: 200604
  4. ALTACE [Concomitant]
     Active Substance: RAMIPRIL
     Dosage: TREATMENT MEDICATION
     Dates: start: 200604
  5. AVANDIA [Suspect]
     Active Substance: ROSIGLITAZONE MALEATE
     Indication: DIABETES MELLITUS
     Dosage: DATES OF AVANDIA USE COULD NOT BE CONFIRMED IN RECORDS REVIEWED.
     Route: 048

REACTIONS (1)
  - Ischaemia [Unknown]

NARRATIVE: CASE EVENT DATE: 20060427
